FAERS Safety Report 6302263-4 (Version None)
Quarter: 2009Q3

REPORT INFORMATION
  Report Type: 
  Country: None (occurrence: None)
  Receive Date: 20090810
  Receipt Date: 20090804
  Transmission Date: 20100115
  Serious: Yes (Hospitalization)
  Sender: FDA-Public Use
  Company Number: DE-WYE-G04092709

PATIENT
  Sex: Female
  Weight: 78.3 kg

DRUGS (11)
  1. TORISEL [Suspect]
     Indication: METASTATIC RENAL CELL CARCINOMA
     Route: 042
     Dates: start: 20090526, end: 20090706
  2. TOREM [Concomitant]
     Route: 048
  3. KALINOR [Concomitant]
     Dosage: 1 TABLET PER DAY
     Route: 048
  4. TRAMAL [Concomitant]
     Dosage: 1 CAPSULE PER DAY
     Route: 048
  5. NEXIUM [Concomitant]
     Route: 048
     Dates: start: 20090616
  6. NOVAMINSULFON-RATIOPHARM [Concomitant]
     Route: 048
  7. FENISTIL [Concomitant]
     Indication: PREMEDICATION
     Dosage: 1 TABLET PRIOR TO TORISEL INFUSION
     Route: 048
     Dates: start: 20090526, end: 20090706
  8. ANEMET [Concomitant]
     Dosage: IF REQUIRED
     Route: 048
     Dates: start: 20090616
  9. DEXAMETHASONE [Concomitant]
     Route: 048
     Dates: start: 20090616
  10. NORVASC [Concomitant]
     Route: 048
  11. ARCOXIA [Concomitant]
     Dosage: 1 TABLET PER DAY
     Route: 048

REACTIONS (6)
  - APNOEA [None]
  - ASTHENIA [None]
  - BRADYCARDIA [None]
  - DIZZINESS [None]
  - DYSPNOEA [None]
  - HYPOTENSION [None]
